FAERS Safety Report 5580273-2 (Version None)
Quarter: 2008Q1

REPORT INFORMATION
  Report Type: 
  Country: None (occurrence: None)
  Receive Date: 20080103
  Receipt Date: 20071224
  Transmission Date: 20080703
  Serious: Yes (Hospitalization)
  Sender: FDA-Public Use
  Company Number: B0494182B

PATIENT
  Age: 39 Year
  Sex: Female

DRUGS (3)
  1. LAPATINIB [Suspect]
     Dosage: 1250MG PER DAY
     Route: 048
     Dates: start: 20071107, end: 20071212
  2. CAPECITABINE [Suspect]
     Dosage: 1500MG TWICE PER DAY
     Route: 048
     Dates: start: 20071129, end: 20071212
  3. CELEBRA [Concomitant]
     Indication: BONE PAIN
     Dosage: 200MG PER DAY
     Route: 048
     Dates: start: 20071107

REACTIONS (9)
  - CLOSTRIDIAL INFECTION [None]
  - DEHYDRATION [None]
  - DIARRHOEA [None]
  - DISEASE PROGRESSION [None]
  - HYPOTENSION [None]
  - PNEUMONIA KLEBSIELLA [None]
  - PYREXIA [None]
  - SEPSIS [None]
  - STENT OCCLUSION [None]
